FAERS Safety Report 9772575 (Version 1)
Quarter: 2013Q4

REPORT INFORMATION
  Report Type: Spontaneous
  Country: US (occurrence: US)
  Receive Date: 20131219
  Receipt Date: 20131219
  Transmission Date: 20140711
  Serious: Yes (Death, Hospitalization)
  Sender: FDA-Public Use
  Company Number: PHHY2013US145397

PATIENT
  Age: 53 Year
  Sex: Female

DRUGS (13)
  1. AZATHIOPRINE [Suspect]
     Indication: NEUROPATHY PERIPHERAL
     Dosage: 50 MG, UNK
     Route: 048
  2. METHYLPREDNISOLONE [Suspect]
     Dosage: 4 MG, UNK
  3. METHYLPREDNISOLONE [Suspect]
     Dosage: 16 MG, Q8H
     Route: 042
  4. METHYLPREDNISOLONE [Suspect]
     Dosage: 1 G, Q8H
     Route: 042
  5. METHYLPREDNISOLONE [Suspect]
     Dosage: 16 MG, Q8H
     Route: 042
  6. POTASSIUM CHLORIDE [Concomitant]
  7. RANITIDINE [Concomitant]
  8. FUROSEMIDE [Concomitant]
  9. GABAPENTIN [Concomitant]
  10. DIGOXIN [Concomitant]
  11. BENAZEPRIL [Concomitant]
  12. RISEDRONATE [Concomitant]
  13. CLOPIDROGEL [Concomitant]

REACTIONS (21)
  - Death [Fatal]
  - Aplastic anaemia [Unknown]
  - Candida infection [Unknown]
  - Bacteroides infection [Unknown]
  - Respiratory failure [Unknown]
  - Staphylococcal infection [Unknown]
  - Plasmacytosis [Unknown]
  - Zygomycosis [Unknown]
  - Pyrexia [Unknown]
  - Fatigue [Unknown]
  - Dyspnoea [Unknown]
  - Oropharyngeal plaque [Unknown]
  - Febrile neutropenia [Unknown]
  - Pancytopenia [Unknown]
  - Pulmonary alveolar haemorrhage [Unknown]
  - Bloody discharge [Unknown]
  - Anaemia [Unknown]
  - Thrombocytopenia [Unknown]
  - Lung infiltration [Unknown]
  - Bone marrow failure [Unknown]
  - Drug ineffective [Unknown]
